FAERS Safety Report 9252328 (Version 1)
Quarter: 2013Q2

REPORT INFORMATION
  Report Type: Spontaneous
  Country: US (occurrence: US)
  Receive Date: 20130424
  Receipt Date: 20130424
  Transmission Date: 20140414
  Serious: Yes (Hospitalization)
  Sender: FDA-Public Use
  Company Number: US-ALEXION-A201300818

PATIENT
  Sex: Male
  Weight: 87.08 kg

DRUGS (13)
  1. SOLIRIS 300MG [Suspect]
     Indication: PAROXYSMAL NOCTURNAL HAEMOGLOBINURIA
     Dosage: 600 MG, QW X 4
     Route: 042
     Dates: start: 20090323
  2. SOLIRIS 300MG [Suspect]
     Dosage: 900 MG, Q2W
     Route: 042
     Dates: start: 2009
  3. CLARITIN [Concomitant]
     Dosage: 10 MG, QD
     Route: 048
  4. COZAAR [Concomitant]
     Indication: HYPERTENSION
     Dosage: 100 MG, QD
     Route: 048
  5. DOCUSATE SODIUM [Concomitant]
     Dosage: 100 MG, BID
     Route: 048
  6. FUROSEMIDE [Concomitant]
     Dosage: 40 MG, QD
     Route: 048
  7. GLUCOSE [Concomitant]
     Indication: DIABETES MELLITUS
     Dosage: 4 G, QD
     Route: 048
  8. MECLIZINE [Concomitant]
     Dosage: 25 MG, QD
     Route: 048
  9. PAROXETINE HYDROCHLORIDE [Concomitant]
     Indication: DEPRESSION
     Dosage: 20 MG, QD
     Route: 048
  10. PIROXICAM [Concomitant]
     Dosage: 20 MG, QD
     Route: 048
  11. SIMVASTATIN [Concomitant]
     Indication: HYPERLIPIDAEMIA
     Dosage: 40 MG, QD
     Route: 048
  12. ZOLPIDEM [Concomitant]
     Dosage: 10 MG, QD
     Route: 048
  13. GABAPENTIN [Concomitant]
     Dosage: 300 MG, QD
     Route: 048

REACTIONS (2)
  - Intervertebral disc degeneration [Unknown]
  - Asthenia [Not Recovered/Not Resolved]
